FAERS Safety Report 22182813 (Version 1)
Quarter: 2023Q2

REPORT INFORMATION
  Report Type: Spontaneous
  Country: JP (occurrence: JP)
  Receive Date: 20230406
  Receipt Date: 20230406
  Transmission Date: 20230721
  Serious: Yes (Other)
  Sender: FDA-Public Use
  Company Number: JP-JNJFOC-20211058350

PATIENT
  Age: 6 Decade
  Sex: Male

DRUGS (2)
  1. ACETAMINOPHEN\TRAMADOL [Suspect]
     Active Substance: ACETAMINOPHEN\TRAMADOL
     Indication: Pain
     Dosage: DOSE UNKNOWN
     Route: 048
  2. ACETAMINOPHEN\TRAMADOL [Suspect]
     Active Substance: ACETAMINOPHEN\TRAMADOL
     Indication: Pain
     Dosage: DOSE UNKNOWN
     Route: 048

REACTIONS (1)
  - Arrhythmia [Unknown]
